FAERS Safety Report 5257281-4 (Version None)
Quarter: 2007Q1

REPORT INFORMATION
  Report Type: 
  Country: None (occurrence: None)
  Receive Date: 20070302
  Receipt Date: 20070215
  Transmission Date: 20070707
  Serious: Yes (Hospitalization)
  Sender: FDA-Public Use
  Company Number: 2007BM000016

PATIENT
  Age: 60 Year
  Sex: Male

DRUGS (3)
  1. PREDNISOLONE [Suspect]
     Indication: VASCULITIS
     Dosage: ; PO
     Route: 048
  2. CYCLOPHOSPHAMIDE [Suspect]
     Indication: VASCULITIS
     Dosage: 2 MG/KG; ; IV
     Route: 042
  3. ORAPRED [Concomitant]

REACTIONS (11)
  - BRAIN ABSCESS [None]
  - CONVULSION [None]
  - DYSPHASIA [None]
  - ENDOPHTHALMITIS [None]
  - FUNGAL INFECTION [None]
  - LUNG CONSOLIDATION [None]
  - MUSCULAR WEAKNESS [None]
  - PULMONARY MASS [None]
  - RHODOCOCCUS INFECTION [None]
  - SUBCUTANEOUS ABSCESS [None]
  - VISUAL ACUITY REDUCED [None]
